FAERS Safety Report 6455664-8 (Version None)
Quarter: 2009Q4

REPORT INFORMATION
  Report Type: 
  Country: None (occurrence: None)
  Receive Date: 20091125
  Receipt Date: 20090908
  Transmission Date: 20100525
  Serious: No
  Sender: FDA-Public Use
  Company Number: US-ABBOTT-09P-163-0596492-00

PATIENT
  Sex: Female
  Weight: 65.83 kg

DRUGS (3)
  1. SIMCOR [Suspect]
     Indication: BLOOD CHOLESTEROL INCREASED
     Dosage: 1 - 500/20MG TAB DAILY
     Route: 048
     Dates: start: 20090904
  2. HORMONE REPLACEMENT COMPOUND [Concomitant]
     Indication: HORMONE REPLACEMENT THERAPY
     Dosage: UNKNOWN
     Route: 048
  3. CELEXA [Concomitant]
     Indication: DEPRESSION
     Dosage: UNKNOWN
     Route: 048

REACTIONS (8)
  - DRUG DOSE OMISSION [None]
  - FEELING ABNORMAL [None]
  - FEELING COLD [None]
  - FEELING HOT [None]
  - FLUSHING [None]
  - INFLUENZA LIKE ILLNESS [None]
  - RASH [None]
  - WRONG TECHNIQUE IN DRUG USAGE PROCESS [None]
